FAERS Safety Report 20494509 (Version 2)
Quarter: 2022Q1

REPORT INFORMATION
  Report Type: Spontaneous
  Country: US (occurrence: US)
  Receive Date: 20220221
  Receipt Date: 20220302
  Transmission Date: 20220423
  Serious: Yes (Other)
  Sender: FDA-Public Use
  Company Number: US-ABBVIE-22K-163-4283175-00

PATIENT
  Sex: Male

DRUGS (4)
  1. LUPRON [Suspect]
     Active Substance: LEUPROLIDE ACETATE
     Indication: Product used for unknown indication
     Route: 065
  2. OFEV [Suspect]
     Active Substance: NINTEDANIB
     Indication: Idiopathic pulmonary fibrosis
     Route: 048
  3. OFEV [Suspect]
     Active Substance: NINTEDANIB
     Route: 048
  4. CASODEX [Suspect]
     Active Substance: BICALUTAMIDE
     Indication: Product used for unknown indication
     Route: 065

REACTIONS (14)
  - Prostate cancer [Not Recovered/Not Resolved]
  - Decreased interest [Unknown]
  - Decreased appetite [Unknown]
  - Diarrhoea [Not Recovered/Not Resolved]
  - Gait disturbance [Unknown]
  - Dyspnoea exertional [Unknown]
  - Weight decreased [Unknown]
  - Dyspnoea [Unknown]
  - Asthenia [Unknown]
  - Insomnia [Unknown]
  - Cough [Unknown]
  - Constipation [Unknown]
  - Fatigue [Unknown]
  - Depression [Unknown]
